FAERS Safety Report 7992602-0 (Version None)
Quarter: 2011Q4

REPORT INFORMATION
  Report Type: 
  Country: None (occurrence: None)
  Receive Date: 20111219
  Receipt Date: 20111216
  Transmission Date: 20120403
  Serious: No
  Sender: FDA-Public Use
  Company Number: US-PFIZER INC-2005036330

PATIENT
  Sex: Male
  Weight: 90.72 kg

DRUGS (2)
  1. XANAX [Suspect]
     Indication: NEUROPATHY PERIPHERAL
     Dosage: UNK
     Route: 048
  2. XANAX [Suspect]
     Dosage: 5 MG, 3X/DAY
     Route: 048

REACTIONS (1)
  - AMNESIA [None]
